FAERS Safety Report 19609462 (Version 1)
Quarter: 2021Q3

REPORT INFORMATION
  Report Type: Spontaneous
  Country: FR (occurrence: FR)
  Receive Date: 20210726
  Receipt Date: 20210726
  Transmission Date: 20211014
  Serious: Yes (Hospitalization)
  Sender: FDA-Public Use
  Company Number: FR-ACCORD-232766

PATIENT
  Age: 91 Year
  Sex: Female
  Weight: 45 kg

DRUGS (11)
  1. LAMALINE [Concomitant]
  2. PREDNISONE/PREDNISONE ACETATE [Concomitant]
     Active Substance: PREDNISONE ACETATE
  3. FUROSEMIDE. [Suspect]
     Active Substance: FUROSEMIDE
     Indication: HYPERTENSION
     Route: 048
     Dates: end: 20210607
  4. MOVICOL [Concomitant]
     Active Substance: POLYETHYLENE GLYCOL 3350\POTASSIUM CHLORIDE\SODIUM BICARBONATE\SODIUM CHLORIDE
  5. TARDYFERON [Concomitant]
     Active Substance: FERROUS SULFATE
  6. LOSARTAN. [Concomitant]
     Active Substance: LOSARTAN
  7. BISOPROLOL [Concomitant]
     Active Substance: BISOPROLOL
  8. PAROXETINE. [Suspect]
     Active Substance: PAROXETINE
     Indication: ANXIETY
     Route: 048
     Dates: start: 20210601, end: 20210607
  9. CLOXACILLIN [Concomitant]
     Active Substance: CLOXACILLIN
  10. UVEDOSE [Concomitant]
     Active Substance: CHOLECALCIFEROL
  11. SERESTA [Concomitant]
     Active Substance: OXAZEPAM

REACTIONS (1)
  - Hyponatraemia [Recovered/Resolved]

NARRATIVE: CASE EVENT DATE: 20210607
